FAERS Safety Report 5591291-2 (Version None)
Quarter: 2008Q1

REPORT INFORMATION
  Report Type: 
  Country: None (occurrence: None)
  Receive Date: 20080110
  Receipt Date: 20080110
  Transmission Date: 20080703
  Serious: Yes (Death)
  Sender: FDA-Public Use
  Company Number: None

PATIENT
  Age: 73 Year
  Sex: Male
  Weight: 68.0396 kg

DRUGS (1)
  1. LEVAQUIN [Suspect]

REACTIONS (1)
  - MYOCARDIAL INFARCTION [None]
